FAERS Safety Report 18721862 (Version 10)
Quarter: 2021Q2

REPORT INFORMATION
  Report Type: Report from Study
  Country: CH (occurrence: CH)
  Receive Date: 20210111
  Receipt Date: 20210504
  Transmission Date: 20210717
  Serious: Yes (Other)
  Sender: FDA-Public Use
  Company Number: CH-BEH-2020115671

PATIENT
  Age: 80 Year
  Sex: Male
  Weight: 95 kg

DRUGS (17)
  1. XARELTO [Concomitant]
     Active Substance: RIVAROXABAN
     Indication: CHRONIC INFLAMMATORY DEMYELINATING POLYRADICULONEUROPATHY
     Dosage: 20 MILLIGRAM
     Route: 048
  2. BRUFEN [IBUPROFEN] [Concomitant]
     Active Substance: IBUPROFEN
     Route: 048
  3. PRIVIGEN [Suspect]
     Active Substance: HUMAN IMMUNOGLOBULIN G
     Dosage: 40 GRAM
     Route: 065
  4. VOLTAREN [DICLOFENAC] [Concomitant]
     Active Substance: DICLOFENAC SODIUM
     Route: 048
  5. PRIVIGEN [Suspect]
     Active Substance: HUMAN IMMUNOGLOBULIN G
     Dosage: 40 GRAM
     Route: 065
  6. PRIVIGEN [Suspect]
     Active Substance: HUMAN IMMUNOGLOBULIN G
     Indication: CHRONIC INFLAMMATORY DEMYELINATING POLYRADICULONEUROPATHY
     Dosage: 2 X 20 G
     Route: 042
     Dates: start: 20200402
  7. PRIVIGEN [Suspect]
     Active Substance: HUMAN IMMUNOGLOBULIN G
     Dosage: 40 GRAM
     Route: 065
  8. PRIVIGEN [Suspect]
     Active Substance: HUMAN IMMUNOGLOBULIN G
     Dosage: 40 GRAM
     Route: 065
  9. PRIVIGEN [Suspect]
     Active Substance: HUMAN IMMUNOGLOBULIN G
     Dosage: 40 GRAM
     Route: 065
  10. PRIVIGEN [Suspect]
     Active Substance: HUMAN IMMUNOGLOBULIN G
     Dosage: 40 GRAM
     Route: 065
  11. PRIVIGEN [Suspect]
     Active Substance: HUMAN IMMUNOGLOBULIN G
     Dosage: UNK
     Route: 065
     Dates: start: 20201013, end: 20201013
  12. METO ZEROK [Concomitant]
     Active Substance: METOPROLOL SUCCINATE
     Indication: CHRONIC INFLAMMATORY DEMYELINATING POLYRADICULONEUROPATHY
     Dosage: 25 MILLIGRAM, SINCE 3 YEARS
     Route: 048
     Dates: start: 2017
  13. PRIVIGEN [Suspect]
     Active Substance: HUMAN IMMUNOGLOBULIN G
     Dosage: 2 X 20 G
     Route: 042
  14. PRIVIGEN [Suspect]
     Active Substance: HUMAN IMMUNOGLOBULIN G
     Dosage: 40 GRAM
     Route: 065
  15. PRIVIGEN [Suspect]
     Active Substance: HUMAN IMMUNOGLOBULIN G
     Dosage: 40 GRAM
     Route: 065
  16. METO ZEROK [Concomitant]
     Active Substance: METOPROLOL SUCCINATE
     Indication: HYPERTENSION
  17. PRIVIGEN [Suspect]
     Active Substance: HUMAN IMMUNOGLOBULIN G
     Dosage: 40 GRAM
     Route: 065
     Dates: start: 20201223

REACTIONS (24)
  - Blood pressure increased [Recovered/Resolved]
  - Neuralgia [Not Recovered/Not Resolved]
  - Pain in extremity [Recovered/Resolved]
  - Limb discomfort [Recovered/Resolved]
  - Gait disturbance [Not Recovered/Not Resolved]
  - Haemorrhage [Recovered/Resolved]
  - Dizziness postural [Recovered/Resolved]
  - Blood pressure increased [Not Recovered/Not Resolved]
  - Epistaxis [Recovered/Resolved]
  - Tendon pain [Recovered/Resolved]
  - Bleeding time prolonged [Recovered/Resolved]
  - Ear pruritus [Recovered/Resolved]
  - Blood pressure increased [Not Recovered/Not Resolved]
  - Hypertension [Recovered/Resolved]
  - Haematoma [Recovered/Resolved]
  - Hypoaesthesia [Not Recovered/Not Resolved]
  - Back pain [Not Recovered/Not Resolved]
  - Myalgia [Recovered/Resolved]
  - Pain in extremity [Recovered/Resolved]
  - Blood pressure increased [Recovering/Resolving]
  - Tendon pain [Recovered/Resolved]
  - Gait disturbance [Recovered/Resolved]
  - Epistaxis [Recovered/Resolved]
  - Dysaesthesia [Recovered/Resolved]

NARRATIVE: CASE EVENT DATE: 20200402
